FAERS Safety Report 4303740-8 (Version None)
Quarter: 2004Q1

REPORT INFORMATION
  Report Type: 
  Country: None (occurrence: None)
  Receive Date: 20040225
  Receipt Date: 20031124
  Transmission Date: 20041129
  Serious: Yes (Other)
  Sender: FDA-Public Use
  Company Number: PHNU2003DE04155

PATIENT
  Age: 65 Year
  Sex: Male
  Weight: 60 kg

DRUGS (4)
  1. CLOZARIL [Suspect]
     Indication: SCHIZOPHRENIA, CATATONIC TYPE
     Dosage: 450MG/DAY
     Route: 048
     Dates: start: 20031111, end: 20031203
  2. CLOZARIL [Suspect]
     Dosage: 450MG/DAY
     Route: 048
     Dates: start: 20040108, end: 20040121
  3. CLOZARIL [Suspect]
     Dosage: 200 MG, BID
     Route: 048
  4. LORAZEPAM [Concomitant]
     Route: 048
     Dates: start: 20031101

REACTIONS (6)
  - AGE INDETERMINATE MYOCARDIAL INFARCTION [None]
  - BUNDLE BRANCH BLOCK RIGHT [None]
  - ELECTROCARDIOGRAM QT CORRECTED INTERVAL [None]
  - ELECTROCARDIOGRAM QT CORRECTED INTERVAL PROLONGED [None]
  - ELECTROCARDIOGRAM QT PROLONGED [None]
  - VENTRICULAR EXTRASYSTOLES [None]
